FAERS Safety Report 6065487-X (Version None)
Quarter: 2009Q1

REPORT INFORMATION
  Report Type: 
  Country: None (occurrence: None)
  Receive Date: 20090204
  Receipt Date: 20090123
  Transmission Date: 20090719
  Serious: Yes (Death, Hospitalization)
  Sender: FDA-Public Use
  Company Number: RU-ROCHE-600002

PATIENT
  Sex: Female
  Weight: 60 kg

DRUGS (3)
  1. CELLCEPT [Suspect]
     Indication: TRANSPLANT
     Route: 048
     Dates: start: 20080320, end: 20080415
  2. PROGRAF [Suspect]
     Indication: TRANSPLANT
     Route: 048
     Dates: start: 20080320, end: 20080412
  3. PREDNISOLONE [Suspect]
     Indication: TRANSPLANT
     Route: 048
     Dates: start: 20080320, end: 20080412

REACTIONS (4)
  - CEREBROVASCULAR ACCIDENT [None]
  - COMPLICATIONS OF TRANSPLANTED KIDNEY [None]
  - GASTROINTESTINAL HAEMORRHAGE [None]
  - GRAFT LOSS [None]
